FAERS Safety Report 7898523-6 (Version None)
Quarter: 2011Q4

REPORT INFORMATION
  Report Type: 
  Country: None (occurrence: None)
  Receive Date: 20111107
  Receipt Date: 20111024
  Transmission Date: 20120403
  Serious: Yes (Hospitalization, Other)
  Sender: FDA-Public Use
  Company Number: IL-ELI_LILLY_AND_COMPANY-IL201106004368

PATIENT
  Sex: Male

DRUGS (13)
  1. GLIMEPIRIDE [Concomitant]
     Dosage: 1 MG, UNK
     Dates: start: 20110612
  2. METFORMIN HCL [Concomitant]
     Dosage: UNK
  3. PLACEBO [Concomitant]
     Dosage: UNK
  4. ACE INHIBITORS [Concomitant]
     Dosage: UNK
  5. ASPIRIN [Concomitant]
     Dosage: UNK
     Dates: start: 20110303
  6. RAMIPRIL [Concomitant]
  7. DIURETICS [Concomitant]
     Dosage: UNK
  8. HMG COA REDUCTASE INHIBITORS [Concomitant]
     Dosage: UNK
  9. HUMALOG MIX 75/25 [Suspect]
     Indication: TYPE 2 DIABETES MELLITUS
     Dosage: UNK
  10. SAXAGLIPTIN [Concomitant]
     Indication: TYPE 2 DIABETES MELLITUS
     Dosage: UNK
     Dates: start: 20110303
  11. BETA BLOCKING AGENTS [Concomitant]
     Dosage: UNK
  12. ANGIOTENSIN II ANTAGONISTS [Concomitant]
     Dosage: UNK
  13. HUMALOG [Suspect]
     Indication: TYPE 2 DIABETES MELLITUS
     Dosage: UNK
     Dates: start: 20110308

REACTIONS (4)
  - CORONARY ARTERY DISEASE [None]
  - HYPOGLYCAEMIA [None]
  - RENAL FAILURE CHRONIC [None]
  - MYOCARDIAL ISCHAEMIA [None]
